FAERS Safety Report 15917308 (Version 4)
Quarter: 2019Q2

REPORT INFORMATION
  Report Type: Spontaneous
  Country: NZ (occurrence: NZ)
  Receive Date: 20190205
  Receipt Date: 20190530
  Transmission Date: 20190711
  Serious: Yes (Other)
  Sender: FDA-Public Use
  Company Number: NZ-BEH-2019098949

PATIENT
  Age: 13 Year
  Sex: Female
  Weight: 48.5 kg

DRUGS (8)
  1. PRIVIGEN [Suspect]
     Active Substance: HUMAN IMMUNOGLOBULIN G
     Indication: KAWASAKI^S DISEASE
     Dosage: 52.2 ML, TOT
     Route: 042
     Dates: start: 20190124, end: 20190124
  2. CEFTRIAXONE. [Concomitant]
     Active Substance: CEFTRIAXONE
     Route: 042
  3. INTRAGAM P [Suspect]
     Active Substance: HUMAN IMMUNOGLOBULIN G
     Dosage: 96 G, TOTAL
     Route: 042
     Dates: start: 20190127
  4. IBUPROFEN. [Concomitant]
     Active Substance: IBUPROFEN
     Indication: KAWASAKI^S DISEASE
     Dosage: 400 MG, UNK
     Route: 048
     Dates: start: 20190123
  5. LACTULOSE. [Concomitant]
     Active Substance: LACTULOSE
     Indication: CONSTIPATION
     Dosage: 10 ML, UNK
     Route: 048
     Dates: start: 20190123, end: 20190125
  6. DOXYCYCLINE. [Suspect]
     Active Substance: DOXYCYCLINE
  7. PANADOL [Concomitant]
     Active Substance: ACETAMINOPHEN
     Indication: PYREXIA
     Dosage: 750 MG, UNK
     Route: 048
     Dates: start: 20190123
  8. INTRAGAM P [Suspect]
     Active Substance: HUMAN IMMUNOGLOBULIN G
     Indication: KAWASAKI^S DISEASE
     Dosage: 96 G, TOTAL
     Route: 042
     Dates: start: 20190124

REACTIONS (17)
  - Dyspnoea [Recovered/Resolved]
  - Nuchal rigidity [Recovered/Resolved]
  - Nausea [Recovered/Resolved]
  - Diplopia [Recovered/Resolved]
  - Photophobia [Recovered/Resolved]
  - Pyrexia [Recovered/Resolved]
  - CSF pressure increased [Recovered/Resolved]
  - Papilloedema [Recovered/Resolved]
  - Oxygen saturation decreased [Recovered/Resolved]
  - Rash [Recovered/Resolved]
  - Intracranial pressure increased [Recovered/Resolved]
  - Chills [Recovered/Resolved]
  - Eye pain [Recovered/Resolved]
  - Pyrexia [Recovered/Resolved]
  - Headache [Recovered/Resolved]
  - Meningitis aseptic [Recovered/Resolved]
  - VIth nerve paralysis [Recovered/Resolved]

NARRATIVE: CASE EVENT DATE: 20190124
